FAERS Safety Report 9837264 (Version 1)
Quarter: 2013Q4

REPORT INFORMATION
  Report Type: Spontaneous
  Country: US (occurrence: None)
  Receive Date: 20131127
  Receipt Date: 20131127
  Transmission Date: 20140711
  Serious: No
  Sender: FDA-Public Use
  Company Number: 224319

PATIENT
  Age: 83 Year
  Sex: Male

DRUGS (1)
  1. PICATO [Suspect]
     Indication: PRECANCEROUS CELLS PRESENT
     Dosage: DAILY X 3 DAYS, TOPICAL
     Route: 061
     Dates: start: 20131007, end: 20131009

REACTIONS (2)
  - Application site erythema [None]
  - Application site pruritus [None]
